FAERS Safety Report 23332738 (Version 7)
Quarter: 2025Q1

REPORT INFORMATION
  Report Type: Spontaneous
  Country: US (occurrence: US)
  Receive Date: 20231222
  Receipt Date: 20250224
  Transmission Date: 20250409
  Serious: Yes (Other)
  Sender: PFIZER
  Company Number: US-PFIZER INC-202300444550

PATIENT
  Age: 71 Year
  Sex: Male

DRUGS (1)
  1. VYNDAMAX [Suspect]
     Active Substance: TAFAMIDIS
     Indication: Acquired ATTR amyloidosis
     Dosage: 61 MG, 1X/DAY
     Dates: start: 20231011

REACTIONS (8)
  - Shock [Unknown]
  - Diplegia [Unknown]
  - Back pain [Not Recovered/Not Resolved]
  - Movement disorder [Unknown]
  - Neuralgia [Not Recovered/Not Resolved]
  - Sinusitis [Unknown]
  - Throat irritation [Unknown]
  - Joint injury [Unknown]

NARRATIVE: CASE EVENT DATE: 20231211
